FAERS Safety Report 7270391-5 (Version None)
Quarter: 2011Q1

REPORT INFORMATION
  Report Type: 
  Country: None (occurrence: None)
  Receive Date: 20110202
  Receipt Date: 20110120
  Transmission Date: 20110831
  Serious: Yes (Other)
  Sender: FDA-Public Use
  Company Number: US-ELI_LILLY_AND_COMPANY-US201010006210

PATIENT
  Sex: Male
  Weight: 93.878 kg

DRUGS (1)
  1. CIALIS [Suspect]
     Indication: ERECTILE DYSFUNCTION
     Dosage: 20 MG, AS NEEDED
     Route: 048
     Dates: start: 20101008, end: 20101010

REACTIONS (6)
  - CHEST PAIN [None]
  - ERECTILE DYSFUNCTION [None]
  - DRUG INEFFECTIVE [None]
  - VISION BLURRED [None]
  - GROIN PAIN [None]
  - BACK PAIN [None]
